FAERS Safety Report 10422936 (Version 1)
Quarter: 2014Q3

REPORT INFORMATION
  Report Type: Spontaneous
  Country: US (occurrence: None)
  Receive Date: 20140722
  Receipt Date: 20140722
  Transmission Date: 20150326
  Serious: No
  Sender: FDA-Public Use
  Company Number: 163-10004-14054388

PATIENT
  Age: 21 Year
  Sex: Female

DRUGS (1)
  1. OTEZLA [Suspect]
     Active Substance: APREMILAST
     Indication: PSORIATIC ARTHROPATHY
     Dates: start: 20140507

REACTIONS (4)
  - Diarrhoea [None]
  - Nausea [None]
  - Abdominal discomfort [None]
  - Weight decreased [None]

NARRATIVE: CASE EVENT DATE: 20140511
